FAERS Safety Report 17171830 (Version 2)
Quarter: 2020Q1

REPORT INFORMATION
  Report Type: Spontaneous
  Country: US (occurrence: US)
  Receive Date: 20191218
  Receipt Date: 20200109
  Transmission Date: 20200409
  Serious: Yes (Hospitalization)
  Sender: FDA-Public Use
  Company Number: US-SA-2019SA340184

PATIENT
  Age: 34 Year
  Sex: Female

DRUGS (2)
  1. CABLIVI [Suspect]
     Active Substance: CAPLACIZUMAB-YHDP
     Indication: THROMBOTIC MICROANGIOPATHY
     Dosage: 11 MG, QD
     Route: 058
     Dates: start: 20191202, end: 20191203
  2. METFORMIN [Concomitant]
     Active Substance: METFORMIN HYDROCHLORIDE
     Dosage: UNK UNK, UNK
     Route: 065

REACTIONS (3)
  - Unevaluable event [Unknown]
  - Hospitalisation [Unknown]
  - Constipation [Recovered/Resolved]
